FAERS Safety Report 8872639 (Version 1)
Quarter: 2012Q4

REPORT INFORMATION
  Report Type: 
  Country: US (occurrence: US)
  Receive Date: 20121026
  Receipt Date: 20121026
  Transmission Date: 20130627
  Serious: No
  Sender: FDA-Public Use
  Company Number: US-AMGEN-USASP2012049410

PATIENT
  Age: 53 Year
  Sex: Female

DRUGS (2)
  1. ENBREL [Suspect]
     Indication: RHEUMATOID ARTHRITIS
     Dosage: 50 mg, qwk
     Dates: start: 20120101
  2. METHOTREXATE [Concomitant]
     Dosage: UNK
     Dates: start: 2005, end: 20120730

REACTIONS (1)
  - Liver function test abnormal [Not Recovered/Not Resolved]
